FAERS Safety Report 5609154-2 (Version None)
Quarter: 2008Q1

REPORT INFORMATION
  Report Type: 
  Country: None (occurrence: None)
  Receive Date: 20080130
  Receipt Date: 20080130
  Transmission Date: 20080703
  Serious: Yes (Life-Threatening, Hospitalization)
  Sender: FDA-Public Use
  Company Number: None

PATIENT
  Sex: Male
  Weight: 95.2554 kg

DRUGS (2)
  1. CIPROFLOXACIN [Suspect]
     Indication: TOOTH INFECTION
     Dosage: 500MG TWICE DAILY
     Dates: start: 20070501, end: 20070507
  2. PACERONE [Concomitant]

REACTIONS (3)
  - RASH [None]
  - TOOTH INFECTION [None]
  - VENTRICULAR TACHYCARDIA [None]
